FAERS Safety Report 4986864-1 (Version None)
Quarter: 2006Q2

REPORT INFORMATION
  Report Type: 
  Country: None (occurrence: None)
  Receive Date: 20060428
  Receipt Date: 20060407
  Transmission Date: 20061013
  Serious: Yes (Hospitalization, Other)
  Sender: FDA-Public Use
  Company Number: FR-ABBOTT-06P-056-0330125-00

PATIENT
  Age: 63 Year
  Sex: Female

DRUGS (6)
  1. LIPANTHYL [Suspect]
     Indication: HYPERCHOLESTEROLAEMIA
     Route: 065
     Dates: start: 20000101, end: 20060301
  2. LIPANTHYL [Suspect]
     Route: 048
     Dates: start: 20060405
  3. LIPANTHYL [Suspect]
     Route: 048
     Dates: start: 20060301, end: 20060301
  4. ESTRADIOL [Concomitant]
     Indication: DRUG USE FOR UNKNOWN INDICATION
  5. PROGESTERONE [Concomitant]
     Indication: DRUG USE FOR UNKNOWN INDICATION
  6. MOXONIDINE [Concomitant]
     Indication: DRUG USE FOR UNKNOWN INDICATION

REACTIONS (2)
  - NECK PAIN [None]
  - TENDON DISORDER [None]
